FAERS Safety Report 14293860 (Version 1)
Quarter: 2017Q4

REPORT INFORMATION
  Report Type: Spontaneous
  Country: DE (occurrence: DE)
  Receive Date: 20171216
  Receipt Date: 20171216
  Transmission Date: 20180321
  Serious: Yes (Life-Threatening, Hospitalization)
  Sender: FDA-Public Use
  Company Number: DE-CIPLA LTD.-2017DE23748

PATIENT

DRUGS (9)
  1. PANITUMUMAB [Suspect]
     Active Substance: PANITUMUMAB
     Indication: COLORECTAL CANCER METASTATIC
     Dosage: 6 MG, UNK
     Route: 042
  2. PANTOZOL [Concomitant]
     Active Substance: PANTOPRAZOLE SODIUM
     Indication: PROPHYLAXIS
     Dosage: 40 MG, QD
     Route: 048
  3. FLUOROURACIL. [Suspect]
     Active Substance: FLUOROURACIL
     Indication: COLORECTAL CANCER METASTATIC
     Dosage: 2400-4608 MG, UNK
     Route: 042
  4. DOXYCYCLIN-RATIOPHARM [Concomitant]
     Indication: PROPHYLAXIS
     Dosage: 100 MG, BID
     Route: 048
     Dates: start: 20171004
  5. PANITUMUMAB [Suspect]
     Active Substance: PANITUMUMAB
     Dosage: UNK
     Route: 042
  6. FOLINIC ACID [Suspect]
     Active Substance: LEUCOVORIN
     Indication: COLORECTAL CANCER METASTATIC
     Dosage: 400 MG - 7680 MG, UNK
     Route: 065
  7. IRINOTECAN [Suspect]
     Active Substance: IRINOTECAN
     Indication: COLORECTAL CANCER METASTATIC
     Dosage: 180-3456 MG, UNK
     Route: 065
  8. FLUOROURACIL. [Suspect]
     Active Substance: FLUOROURACIL
     Dosage: 400-7680 MG, UNK
     Route: 040
  9. RAMIPRIL BETA COMP [Concomitant]
     Indication: HYPERTENSION
     Dosage: 5 MG, BID
     Route: 048

REACTIONS (1)
  - Otitis externa [Not Recovered/Not Resolved]

NARRATIVE: CASE EVENT DATE: 20171106
